FAERS Safety Report 21915746 (Version 1)
Quarter: 2023Q1

REPORT INFORMATION
  Report Type: Spontaneous
  Country: US (occurrence: US)
  Receive Date: 20230126
  Receipt Date: 20230126
  Transmission Date: 20230418
  Serious: Yes (Other)
  Sender: FDA-Public Use
  Company Number: US-SA-SAC20230124001916

PATIENT
  Age: 70 Year
  Sex: Female

DRUGS (3)
  1. AUBAGIO [Suspect]
     Active Substance: TERIFLUNOMIDE
     Dosage: 7 MG, QD
     Route: 048
     Dates: start: 20200824
  2. ATORVASTATIN [Concomitant]
     Active Substance: ATORVASTATIN
     Dosage: UNK
  3. GENTAMICIN [Concomitant]
     Active Substance: GENTAMICIN
     Dosage: UNK

REACTIONS (2)
  - Surgery [Unknown]
  - Post procedural infection [Unknown]

NARRATIVE: CASE EVENT DATE: 20230101
